FAERS Safety Report 6286425-0 (Version None)
Quarter: 2009Q3

REPORT INFORMATION
  Report Type: 
  Country: None (occurrence: None)
  Receive Date: 20090728
  Receipt Date: 20090720
  Transmission Date: 20100115
  Serious: Yes (Death, Hospitalization, Congenital Anomaly)
  Sender: FDA-Public Use
  Company Number: A0685052A

PATIENT
  Sex: Female
  Weight: 3.1 kg

DRUGS (5)
  1. PAXIL [Suspect]
     Indication: POSTPARTUM DEPRESSION
     Dosage: 20MG PER DAY
     Dates: start: 19951015
  2. VITAMIN TAB [Concomitant]
  3. IBUPROFEN [Concomitant]
  4. DARVOCET [Concomitant]
  5. TYLENOL [Concomitant]

REACTIONS (16)
  - ATRIAL SEPTAL DEFECT [None]
  - BICUSPID AORTIC VALVE [None]
  - CARDIAC ARREST [None]
  - CARDIOMEGALY [None]
  - CEREBRAL PALSY [None]
  - CEREBROVASCULAR ACCIDENT [None]
  - COARCTATION OF THE AORTA [None]
  - CONGENITAL HIP DEFORMITY [None]
  - CONGENITAL SCOLIOSIS [None]
  - DRUG EXPOSURE DURING PREGNANCY [None]
  - ENCEPHALOPATHY [None]
  - HYPOPLASTIC LEFT HEART SYNDROME [None]
  - MENTAL RETARDATION [None]
  - PATENT DUCTUS ARTERIOSUS [None]
  - TRICUSPID VALVE INCOMPETENCE [None]
  - VENTRICULAR SEPTAL DEFECT [None]
